FAERS Safety Report 5029805-3 (Version None)
Quarter: 2006Q2

REPORT INFORMATION
  Report Type: 
  Country: None (occurrence: None)
  Receive Date: 20060620
  Receipt Date: 20060614
  Transmission Date: 20061013
  Serious: Yes (Death, Other)
  Sender: FDA-Public Use
  Company Number: JP-AVENTIS-200611841JP

PATIENT
  Age: 60 Year
  Sex: Male

DRUGS (3)
  1. TAXOTERE [Suspect]
     Indication: LUNG SQUAMOUS CELL CARCINOMA STAGE III
     Route: 041
     Dates: start: 20020311
  2. CARBOPLATIN [Concomitant]
     Indication: LUNG SQUAMOUS CELL CARCINOMA STAGE III
     Dates: start: 20020311
  3. RADIOTHERAPY [Concomitant]
     Indication: LUNG SQUAMOUS CELL CARCINOMA STAGE III
     Dosage: DOSE: 60GY/TOTAL

REACTIONS (8)
  - ASPIRATION BONE MARROW [None]
  - ASTHENIA [None]
  - BLOOD LACTATE DEHYDROGENASE INCREASED [None]
  - EPISTAXIS [None]
  - HAEMATURIA [None]
  - IDIOPATHIC THROMBOCYTOPENIC PURPURA [None]
  - PLATELET COUNT DECREASED [None]
  - WHITE BLOOD CELL COUNT DECREASED [None]
